FAERS Safety Report 14701004 (Version 1)
Quarter: 2018Q1

REPORT INFORMATION
  Report Type: Spontaneous
  Country: US (occurrence: US)
  Receive Date: 20180328
  Receipt Date: 20180328
  Transmission Date: 20180509
  Serious: Yes (Other)
  Sender: FDA-Public Use
  Company Number: None

PATIENT
  Age: 56 Year
  Sex: Female

DRUGS (1)
  1. ENBREL [Suspect]
     Active Substance: ETANERCEPT
     Indication: PSORIATIC ARTHROPATHY
     Route: 058
     Dates: start: 20160810, end: 20180102

REACTIONS (5)
  - Contusion [None]
  - Abdominal pain upper [None]
  - Back pain [None]
  - Headache [None]
  - Liver disorder [None]

NARRATIVE: CASE EVENT DATE: 20180116
